FAERS Safety Report 14613801 (Version 1)
Quarter: 2018Q1

REPORT INFORMATION
  Report Type: Spontaneous
  Country: US (occurrence: US)
  Receive Date: 20180308
  Receipt Date: 20180308
  Transmission Date: 20180509
  Serious: Yes (Hospitalization, Disabling, Other)
  Sender: FDA-Public Use
  Company Number: None

PATIENT
  Age: 66 Year
  Sex: Female
  Weight: 58.06 kg

DRUGS (5)
  1. VITAMIN [Concomitant]
     Active Substance: VITAMINS
  2. TENS UNIT [Concomitant]
  3. SUPPLEMENTS [Concomitant]
     Active Substance: UNSPECIFIED INGREDIENT
  4. CIPROFLOXACIN HCL [Suspect]
     Active Substance: CIPROFLOXACIN HYDROCHLORIDE
     Indication: CYSTITIS
     Route: 048
     Dates: start: 20110315, end: 20110322
  5. CIPROFLOXACIN HCL [Suspect]
     Active Substance: CIPROFLOXACIN HYDROCHLORIDE
     Indication: URINARY TRACT INFECTION
     Route: 048
     Dates: start: 20110315, end: 20110322

REACTIONS (21)
  - Restless legs syndrome [None]
  - Plantar fasciitis [None]
  - Headache [None]
  - Photophobia [None]
  - Palpitations [None]
  - Intervertebral disc degeneration [None]
  - Quality of life decreased [None]
  - Feeling abnormal [None]
  - Muscle twitching [None]
  - Tendonitis [None]
  - Fatigue [None]
  - Insomnia [None]
  - Neuropathy peripheral [None]
  - Anxiety [None]
  - Loss of personal independence in daily activities [None]
  - Osteoarthritis [None]
  - Gastrointestinal disorder [None]
  - Pain [None]
  - Diplopia [None]
  - Amnesia [None]
  - Hyperacusis [None]

NARRATIVE: CASE EVENT DATE: 20110629
